FAERS Safety Report 5370936-6 (Version None)
Quarter: 2007Q2

REPORT INFORMATION
  Report Type: 
  Country: None (occurrence: None)
  Receive Date: 20070626
  Receipt Date: 20070619
  Transmission Date: 20071010
  Serious: Yes (Hospitalization)
  Sender: FDA-Public Use
  Company Number: TR-ABBOTT-07P-161-0371863-00

PATIENT
  Sex: Female
  Weight: 55 kg

DRUGS (6)
  1. ZEMPLAR [Suspect]
     Indication: HYPERPARATHYROIDISM SECONDARY
     Route: 042
     Dates: start: 20070611
  2. SACCHARATED IRON OXIDE [Concomitant]
     Indication: ANAEMIA
     Route: 042
  3. PHOSEX [Concomitant]
     Indication: HYPERPHOSPHATAEMIA
     Route: 048
  4. DASTINIX [Concomitant]
     Indication: PROLACTINOMA
     Route: 065
  5. CORASPIRIN 100 [Concomitant]
     Indication: ARTERIOSCLEROSIS
     Route: 065
  6. EPOETIN ALFA [Concomitant]
     Indication: ANAEMIA
     Route: 065

REACTIONS (4)
  - DIZZINESS [None]
  - HEADACHE [None]
  - VOMITING [None]
  - WEIGHT DECREASED [None]
